FAERS Safety Report 9835944 (Version 2)
Quarter: 2014Q1

REPORT INFORMATION
  Report Type: Spontaneous
  Country: US (occurrence: US)
  Receive Date: 20140122
  Receipt Date: 20140219
  Transmission Date: 20141002
  Serious: No
  Sender: FDA-Public Use
  Company Number: US-GILEAD-2014-0092715

PATIENT
  Sex: Female
  Weight: 45.81 kg

DRUGS (13)
  1. RANEXA [Suspect]
     Indication: ANGINA PECTORIS
     Dosage: 1000 MG, UNK
     Route: 048
  2. RANEXA [Suspect]
     Indication: CORONARY ARTERY DISEASE
  3. RANEXA [Suspect]
     Indication: DYSPNOEA EXERTIONAL
  4. RANEXA [Suspect]
     Indication: TYPE 2 DIABETES MELLITUS
  5. ASA [Concomitant]
     Indication: CORONARY ARTERY BYPASS
     Dosage: UNK
     Route: 048
     Dates: start: 19940106
  6. BYSTOLIC [Concomitant]
     Indication: HYPERTENSION
     Dosage: UNK
     Route: 048
     Dates: start: 20130314
  7. EXFORGE [Concomitant]
     Indication: HYPERTENSION
     Dosage: UNK
     Route: 048
     Dates: start: 20130314
  8. CRESTOR [Concomitant]
     Indication: HYPERLIPIDAEMIA
     Dosage: UNK
     Route: 048
     Dates: start: 20110210
  9. FERROUS GLUCONATE [Concomitant]
     Indication: ANAEMIA
     Dosage: UNK
     Route: 048
     Dates: start: 20110210
  10. IMDUR [Concomitant]
     Indication: CORONARY ARTERY DISEASE
     Dosage: UNK
     Route: 048
     Dates: start: 19940106
  11. IMDUR [Concomitant]
     Indication: ANGINA PECTORIS
  12. PLAVIX [Concomitant]
     Indication: CORONARY ARTERY BYPASS
     Dosage: UNK
     Route: 048
     Dates: start: 19940106
  13. PLAVIX [Concomitant]
     Indication: CORONARY ARTERY DISEASE

REACTIONS (2)
  - Arthritis [Recovering/Resolving]
  - Arthropathy [Recovering/Resolving]
